FAERS Safety Report 5950722-6 (Version None)
Quarter: 2008Q4

REPORT INFORMATION
  Report Type: 
  Country: None (occurrence: None)
  Receive Date: 20081022
  Receipt Date: 20080731
  Transmission Date: 20090506
  Serious: No
  Sender: FDA-Public Use
  Company Number: ALL1-2008-02168

PATIENT
  Age: 15 Year
  Sex: Female
  Weight: 64.9 kg

DRUGS (2)
  1. VYVANSE [Suspect]
     Indication: ATTENTION DEFICIT/HYPERACTIVITY DISORDER
     Dosage: 50 MG, 1X/DAY:QD, ORAL; 70  MG, 1X/DAY:QD, ORAL
     Route: 048
     Dates: start: 20080704, end: 20080707
  2. VYVANSE [Suspect]
     Indication: ATTENTION DEFICIT/HYPERACTIVITY DISORDER
     Dosage: 50 MG, 1X/DAY:QD, ORAL; 70  MG, 1X/DAY:QD, ORAL
     Route: 048
     Dates: start: 20080708, end: 20080730

REACTIONS (4)
  - ANOREXIA [None]
  - DRUG INEFFECTIVE [None]
  - OFF LABEL USE [None]
  - WEIGHT DECREASED [None]
